FAERS Safety Report 18180755 (Version 1)
Quarter: 2020Q3

REPORT INFORMATION
  Report Type: Spontaneous
  Country: US (occurrence: US)
  Receive Date: 20200821
  Receipt Date: 20200821
  Transmission Date: 20201103
  Serious: Yes (Other)
  Sender: FDA-Public Use
  Company Number: None

PATIENT
  Age: 36 Year
  Sex: Male
  Weight: 61.65 kg

DRUGS (1)
  1. DIVALPROEX [Suspect]
     Active Substance: DIVALPROEX SODIUM
     Indication: SEIZURE
     Dosage: ?          OTHER FREQUENCY:2 AM, 1 NOON, 2 PM;?
     Route: 048
     Dates: start: 20141101, end: 20141113

REACTIONS (3)
  - Product substitution issue [None]
  - Product formulation issue [None]
  - Therapeutic response decreased [None]

NARRATIVE: CASE EVENT DATE: 20141130
